FAERS Safety Report 18830992 (Version 1)
Quarter: 2021Q1

REPORT INFORMATION
  Report Type: Spontaneous
  Country: US (occurrence: US)
  Receive Date: 20210201
  Receipt Date: 20210201
  Transmission Date: 20210419
  Serious: Yes (Other)
  Sender: FDA-Public Use
  Company Number: US-ABBVIE-20K-163-3673948-00

PATIENT
  Age: 65 Year
  Sex: Female

DRUGS (1)
  1. HUMIRA [Suspect]
     Active Substance: ADALIMUMAB
     Indication: PSORIATIC ARTHROPATHY
     Route: 058

REACTIONS (9)
  - Palpitations [Unknown]
  - Hypertension [Unknown]
  - Oropharyngeal pain [Recovering/Resolving]
  - Periorbital swelling [Unknown]
  - Muscle spasms [Unknown]
  - Eye pruritus [Unknown]
  - Skin texture abnormal [Unknown]
  - Parosmia [Unknown]
  - Rhinorrhoea [Unknown]
